FAERS Safety Report 6965084-5 (Version None)
Quarter: 2010Q3

REPORT INFORMATION
  Report Type: 
  Country: None (occurrence: None)
  Receive Date: 20100903
  Receipt Date: 20100825
  Transmission Date: 20110219
  Serious: Yes (Hospitalization)
  Sender: FDA-Public Use
  Company Number: JP-JNJFOC-20100807140

PATIENT
  Sex: Male
  Weight: 70 kg

DRUGS (15)
  1. INFLIXIMAB, RECOMBINANT [Suspect]
     Indication: CROHN'S DISEASE
     Route: 042
  2. INFLIXIMAB, RECOMBINANT [Suspect]
     Route: 042
  3. INFLIXIMAB, RECOMBINANT [Suspect]
     Route: 042
  4. INFLIXIMAB, RECOMBINANT [Suspect]
     Dosage: A TOTAL OF 4 INFUSIONS
     Route: 042
  5. ISCOTIN [Concomitant]
     Route: 048
  6. ELENTAL [Concomitant]
     Route: 048
  7. ELENTAL [Concomitant]
     Route: 048
  8. DAI-KENCHU-TO [Concomitant]
     Route: 048
  9. DAI-KENCHU-TO [Concomitant]
     Route: 048
  10. PENTASA [Concomitant]
     Route: 048
  11. PENTASA [Concomitant]
     Route: 048
  12. BIO-THREE [Concomitant]
     Route: 048
  13. BIO-THREE [Concomitant]
     Route: 048
  14. UNASYN [Concomitant]
     Indication: INFECTION
     Route: 048
  15. LOXONIN [Concomitant]
     Route: 048

REACTIONS (7)
  - ARTHRALGIA [None]
  - C-REACTIVE PROTEIN INCREASED [None]
  - GAIT DISTURBANCE [None]
  - INFECTION [None]
  - INFLAMMATION [None]
  - PYREXIA [None]
  - SURGERY [None]
